FAERS Safety Report 20832771 (Version 1)
Quarter: 2022Q2

REPORT INFORMATION
  Report Type: Report from Study
  Country: US (occurrence: US)
  Receive Date: 20220516
  Receipt Date: 20220516
  Transmission Date: 20220721
  Serious: No
  Sender: FDA-Public Use
  Company Number: US-TG THERAPEUTICS INC.-TGT002467

PATIENT
  Sex: Female

DRUGS (1)
  1. UMBRALISIB [Suspect]
     Active Substance: UMBRALISIB
     Indication: Non-Hodgkin^s lymphoma
     Dosage: 600 MILLIGRAM, QD WITHIN 30 MIN OF A MEAL
     Route: 048
     Dates: start: 20220201

REACTIONS (1)
  - Palpitations [Unknown]
